FAERS Safety Report 10378552 (Version 2)
Quarter: 2014Q3

REPORT INFORMATION
  Report Type: Spontaneous
  Country: US (occurrence: US)
  Receive Date: 20140812
  Receipt Date: 20140908
  Transmission Date: 20150326
  Serious: Yes (Death, Hospitalization, Other)
  Sender: FDA-Public Use
  Company Number: US-MERCK-1408USA005601

PATIENT
  Sex: Male
  Weight: 113.38 kg

DRUGS (10)
  1. JANUVIA [Suspect]
     Active Substance: SITAGLIPTIN PHOSPHATE
     Dosage: 100 MG, QD + 1/2 TAB BID
     Route: 048
  2. METFORMIN [Concomitant]
     Active Substance: METFORMIN HYDROCHLORIDE
     Indication: TYPE 2 DIABETES MELLITUS
     Dosage: UNK
     Dates: start: 20120206, end: 201304
  3. WARFARIN [Concomitant]
     Active Substance: WARFARIN
     Indication: ANTICOAGULANT THERAPY
  4. JANUVIA [Suspect]
     Active Substance: SITAGLIPTIN PHOSPHATE
     Indication: TYPE 2 DIABETES MELLITUS
     Dosage: 100 MG, QD
     Route: 048
     Dates: start: 20120416, end: 20130507
  5. ATENOLOL. [Concomitant]
     Active Substance: ATENOLOL
     Indication: HYPERTENSION
     Dosage: 100 MG, UNK
     Dates: start: 20120123, end: 20130507
  6. WARFARIN [Concomitant]
     Active Substance: WARFARIN
     Indication: THROMBOSIS
     Dosage: 4-5 MG, QD
     Dates: start: 20110401, end: 20130216
  7. VERAPAMIL [Concomitant]
     Active Substance: VERAPAMIL HYDROCHLORIDE
     Indication: HYPERTENSION
     Dosage: 120 MG, QD
     Dates: start: 20120123, end: 20120507
  8. LISINOPRIL. [Concomitant]
     Active Substance: LISINOPRIL
     Indication: HYPERTENSION
     Dosage: 20 MG, UNK
     Dates: start: 20120206, end: 20130221
  9. LOSARTAN POTASSIUM. [Concomitant]
     Active Substance: LOSARTAN POTASSIUM
     Indication: HYPERTENSION
     Dosage: 25 MG, UNK
     Dates: start: 20120226, end: 20120906
  10. JANUMET [Suspect]
     Active Substance: METFORMIN HYDROCHLORIDE\SITAGLIPTIN PHOSPHATE
     Indication: TYPE 2 DIABETES MELLITUS
     Dosage: 50-1000 MG, BID
     Route: 048
     Dates: start: 20120912

REACTIONS (22)
  - Asthenia [Unknown]
  - Cholangiostomy [Unknown]
  - Pain [Unknown]
  - Bile duct obstruction [Unknown]
  - Back injury [Unknown]
  - Atrial fibrillation [Unknown]
  - Flank pain [Unknown]
  - Coagulopathy [Unknown]
  - Treatment noncompliance [Unknown]
  - Renal failure [Unknown]
  - Biliary drainage [Unknown]
  - Contusion [Unknown]
  - Dehydration [Unknown]
  - Wrong technique in drug usage process [Unknown]
  - Fatigue [Unknown]
  - Drug administration error [Unknown]
  - Disability [Unknown]
  - Pancreatic carcinoma [Unknown]
  - Death [Fatal]
  - Hyperlipidaemia [Unknown]
  - Hypokalaemia [Unknown]
  - Coagulation time prolonged [Unknown]

NARRATIVE: CASE EVENT DATE: 201209
